FAERS Safety Report 14839768 (Version 1)
Quarter: 2018Q2

REPORT INFORMATION
  Report Type: Spontaneous
  Country: FR (occurrence: FR)
  Receive Date: 20180503
  Receipt Date: 20180503
  Transmission Date: 20180711
  Serious: Yes (Other)
  Sender: FDA-Public Use
  Company Number: FR-MERCK KGAA-2047046

PATIENT
  Age: 67 Year
  Sex: Female

DRUGS (1)
  1. NOVOTHYROX [Suspect]
     Active Substance: LEVOTHYROXINE SODIUM
     Indication: HYPOTHYROIDISM

REACTIONS (15)
  - Tremor [Recovered/Resolved]
  - General physical condition abnormal [None]
  - Depression [Recovered/Resolved]
  - Blood thyroid stimulating hormone decreased [Recovered/Resolved]
  - Vertigo [Recovered/Resolved]
  - Fatigue [None]
  - Dizziness [Recovered/Resolved]
  - Disturbance in attention [None]
  - Alopecia [Recovered/Resolved]
  - Mental disorder [None]
  - Somnolence [None]
  - Blood pressure abnormal [Recovered/Resolved]
  - Hyperthyroidism [Recovered/Resolved]
  - Asthenia [Recovered/Resolved]
  - Alopecia [Recovered/Resolved]

NARRATIVE: CASE EVENT DATE: 2017
